FAERS Safety Report 7213609-7 (Version None)
Quarter: 2011Q1

REPORT INFORMATION
  Report Type: 
  Country: None (occurrence: None)
  Receive Date: 20110106
  Receipt Date: 20101228
  Transmission Date: 20110831
  Serious: Yes (Other)
  Sender: FDA-Public Use
  Company Number: US-GILEAD-2010-0030349

PATIENT
  Age: 41 Year
  Sex: Female

DRUGS (3)
  1. KALETRA [Concomitant]
     Indication: HIV INFECTION
     Route: 048
     Dates: start: 20100409
  2. KALETRA [Concomitant]
     Route: 048
     Dates: start: 20100401, end: 20100428
  3. TRUVADA [Suspect]
     Indication: HIV INFECTION
     Route: 048
     Dates: start: 20100401

REACTIONS (1)
  - GESTATIONAL DIABETES [None]
